FAERS Safety Report 7369250-9 (Version None)
Quarter: 2011Q1

REPORT INFORMATION
  Report Type: 
  Country: None (occurrence: None)
  Receive Date: 20110323
  Receipt Date: 20110315
  Transmission Date: 20110831
  Serious: Yes (Hospitalization)
  Sender: FDA-Public Use
  Company Number: A0774943A

PATIENT
  Age: 44 Year
  Sex: Male
  Weight: 93.6 kg

DRUGS (3)
  1. METFORMIN [Concomitant]
  2. LIPITOR [Concomitant]
  3. AVANDIA [Suspect]
     Indication: PRODUCT USED FOR UNKNOWN INDICATION
     Dosage: 4MG PER DAY
     Route: 048
     Dates: start: 20060901, end: 20070401

REACTIONS (6)
  - CARDIAC FLUTTER [None]
  - CORONARY ARTERY OCCLUSION [None]
  - MYOCARDIAL INFARCTION [None]
  - STRESS [None]
  - ELECTROCARDIOGRAM POOR R-WAVE PROGRESSION [None]
  - DEATH OF COMPANION [None]
